FAERS Safety Report 4748314-X (Version None)
Quarter: 2005Q3

REPORT INFORMATION
  Report Type: 
  Country: None (occurrence: None)
  Receive Date: 20050815
  Receipt Date: 20050426
  Transmission Date: 20060218
  Serious: No
  Sender: FDA-Public Use
  Company Number: USA040670472

PATIENT
  Age: 74 Year
  Sex: Male
  Weight: 89 kg

DRUGS (8)
  1. CIALIS [Suspect]
     Indication: ERECTILE DYSFUNCTION
     Dosage: 20 MG
     Dates: start: 20040601
  2. CIALIS [Suspect]
  3. VALSARTAN [Concomitant]
  4. PRINIVIL [Concomitant]
  5. ATENOLOL [Concomitant]
  6. HYDROCHLOROTHIAZID [Concomitant]
  7. ANDROGEL [Concomitant]
  8. COLCHICINE [Concomitant]

REACTIONS (1)
  - DRUG INEFFECTIVE [None]
